FAERS Safety Report 6498378-0 (Version None)
Quarter: 2009Q4

REPORT INFORMATION
  Report Type: 
  Country: None (occurrence: None)
  Receive Date: 20091127
  Receipt Date: 20091109
  Transmission Date: 20100525
  Serious: Yes (Hospitalization)
  Sender: FDA-Public Use
  Company Number: 291355

PATIENT
  Age: 71 Year
  Sex: Female
  Weight: 61.8 kg

DRUGS (8)
  1. NOVOLOG [Suspect]
     Indication: TYPE 2 DIABETES MELLITUS
     Dosage: TID SLIDING SCALE, SUBCUTANEOUS
     Route: 058
     Dates: start: 19990101
  2. LEVEMIR [Suspect]
     Indication: TYPE 2 DIABETES MELLITUS
     Dosage: 40 LU, QD EVERY NIGHT, SUBCUTANEOUS
     Route: 058
     Dates: start: 19990101
  3. LANTUS [Suspect]
     Indication: TYPE 2 DIABETES MELLITUS
     Dosage: 40 U, QD, SUBCUTANEOUS
     Route: 058
     Dates: start: 20090101
  4. METFORMIN HCL [Suspect]
     Indication: TYPE 2 DIABETES MELLITUS
     Dosage: QD, ORAL
     Route: 048
  5. THYROID THERAPY [Concomitant]
  6. ANTIINFLAMMATORY AGENTS, NON-STEROIDS [Concomitant]
  7. LEVOTHYROXINE SODIUM [Concomitant]
  8. PRAVASTATIN [Concomitant]

REACTIONS (1)
  - HYPOGLYCAEMIC SEIZURE [None]
